FAERS Safety Report 16552615 (Version 4)
Quarter: 2019Q3

REPORT INFORMATION
  Report Type: Spontaneous
  Country: US (occurrence: US)
  Receive Date: 20190710
  Receipt Date: 20190917
  Transmission Date: 20191004
  Serious: No
  Sender: FDA-Public Use
  Company Number: US-PFIZER INC-2019291774

PATIENT
  Age: 71 Year
  Sex: Male

DRUGS (2)
  1. DILANTIN [Suspect]
     Active Substance: PHENYTOIN
     Indication: SEIZURE
     Dosage: 200 MG, 2X/DAY(2 CAPS, 2X DAILY PO [TAKES FOUR A DAY])
     Route: 048
  2. DILANTIN [Suspect]
     Active Substance: PHENYTOIN
     Dosage: 1 DF, 2X/DAY (ONE CAPSULE TWICE DAILY)

REACTIONS (2)
  - Product prescribing error [Unknown]
  - Malaise [Unknown]
